FAERS Safety Report 6173526-0 (Version None)
Quarter: 2009Q2

REPORT INFORMATION
  Report Type: 
  Country: None (occurrence: None)
  Receive Date: 20090430
  Receipt Date: 20090421
  Transmission Date: 20091009
  Serious: Yes (Other)
  Sender: FDA-Public Use
  Company Number: B0556520A

PATIENT
  Sex: Female

DRUGS (7)
  1. PAXIL [Suspect]
     Indication: PANIC DISORDER
     Route: 048
     Dates: start: 20020101
  2. PAXIL [Suspect]
     Dosage: 20MG PER DAY
     Route: 048
     Dates: start: 20051129
  3. PAXIL [Suspect]
     Dosage: 30MG PER DAY
     Route: 048
     Dates: start: 20090108
  4. SOLANAX [Concomitant]
     Indication: ANXIETY
     Route: 048
     Dates: start: 20051129
  5. SAWACILLIN [Concomitant]
     Dosage: 250MG PER DAY
     Route: 048
     Dates: start: 20090126, end: 20090126
  6. SAWACILLIN [Concomitant]
     Dosage: 1000MG PER DAY
     Route: 048
     Dates: start: 20090127
  7. UNKNOWN DRUG [Concomitant]
     Dosage: 50MG PER DAY
     Route: 048
     Dates: start: 20090126

REACTIONS (12)
  - ABORTION SPONTANEOUS [None]
  - ABORTION THREATENED [None]
  - ANXIETY [None]
  - DRUG EXPOSURE DURING PREGNANCY [None]
  - FOETAL MACROSOMIA [None]
  - HEART SOUNDS ABNORMAL [None]
  - HYPERVENTILATION [None]
  - INTRA-UTERINE DEATH [None]
  - OBSTRUCTED LABOUR [None]
  - PRURIGO [None]
  - UTERINE HYPOTONUS [None]
  - VAGINAL DISCHARGE [None]
